FAERS Safety Report 4713833-9 (Version None)
Quarter: 2005Q3

REPORT INFORMATION
  Report Type: 
  Country: None (occurrence: None)
  Receive Date: 20050712
  Receipt Date: 20050629
  Transmission Date: 20060218
  Serious: Yes (Other)
  Sender: FDA-Public Use
  Company Number: 2005093778

PATIENT
  Sex: Female

DRUGS (3)
  1. DILANTIN [Suspect]
     Indication: CONVULSION
  2. SUMATRIPTAN SUCCINATE [Suspect]
     Indication: MIGRAINE
     Dosage: (20 MG), NASAL - SEE IMAGE
     Route: 045
  3. TRAZODONE HCL [Concomitant]

REACTIONS (4)
  - CONVULSION [None]
  - HEPATOCELLULAR DAMAGE [None]
  - NAUSEA [None]
  - VOMITING [None]
